FAERS Safety Report 6770198-9 (Version None)
Quarter: 2010Q2

REPORT INFORMATION
  Report Type: 
  Country: None (occurrence: None)
  Receive Date: 20100615
  Receipt Date: 20100602
  Transmission Date: 20101027
  Serious: Yes (Hospitalization)
  Sender: FDA-Public Use
  Company Number: US-ELI_LILLY_AND_COMPANY-US201006001721

PATIENT
  Sex: Female

DRUGS (6)
  1. CYMBALTA [Suspect]
     Indication: DEPRESSION
     Dosage: 60 MG, DAILY (1/D)
  2. CYMBALTA [Suspect]
     Dosage: 120 MG, DAILY (1/D)
     Dates: end: 20100602
  3. CYMBALTA [Suspect]
     Dosage: 60 MG, DAILY (1/D)
     Dates: start: 20100602
  4. OXYCODONE [Concomitant]
     Dosage: 5 MG, EVERY 6 HRS
  5. BACTRIM [Concomitant]
  6. IBUPROFEN [Concomitant]

REACTIONS (21)
  - ANXIETY [None]
  - BODY TEMPERATURE FLUCTUATION [None]
  - CHEST DISCOMFORT [None]
  - COLLAPSE OF LUNG [None]
  - CYSTITIS [None]
  - DEPRESSION [None]
  - DIZZINESS [None]
  - DYSARTHRIA [None]
  - FALL [None]
  - FEELING ABNORMAL [None]
  - GAIT DISTURBANCE [None]
  - HOT FLUSH [None]
  - HYPERHIDROSIS [None]
  - HYPOAESTHESIA [None]
  - MOTOR DYSFUNCTION [None]
  - NERVOUS SYSTEM DISORDER [None]
  - ORAL DYSAESTHESIA [None]
  - PERIPHERAL COLDNESS [None]
  - RIB FRACTURE [None]
  - SCAPULA FRACTURE [None]
  - SPINAL FRACTURE [None]
